FAERS Safety Report 4861894-9 (Version None)
Quarter: 2005Q4

REPORT INFORMATION
  Report Type: 
  Country: None (occurrence: None)
  Receive Date: 20051129
  Receipt Date: 20050803
  Transmission Date: 20060501
  Serious: No
  Sender: FDA-Public Use
  Company Number: WAES 0508USA01020

PATIENT
  Age: 73 Year
  Sex: Female

DRUGS (4)
  1. ZETIA [Suspect]
     Indication: HYPERCHOLESTEROLAEMIA
     Dosage: 10 MG DAILY PO
     Route: 048
     Dates: start: 20050601
  2. PROLIXIN [Concomitant]
  3. (THERAPY UNSPECIFIED) [Concomitant]
  4. ACETAMINOPHEN (+) DICHLORALPHENA [Concomitant]

REACTIONS (1)
  - MIGRAINE [None]
